FAERS Safety Report 8009092-4 (Version None)
Quarter: 2011Q4

REPORT INFORMATION
  Report Type: 
  Country: None (occurrence: None)
  Receive Date: 20111227
  Receipt Date: 20111220
  Transmission Date: 20120403
  Serious: No
  Sender: FDA-Public Use
  Company Number: US-PFIZER INC-2011308840

PATIENT

DRUGS (1)
  1. TOVIAZ [Suspect]
     Indication: HYPERTONIC BLADDER
     Dosage: UNK

REACTIONS (4)
  - VISION BLURRED [None]
  - GINGIVAL BLEEDING [None]
  - DRUG INEFFECTIVE [None]
  - DRY MOUTH [None]
